FAERS Safety Report 9297805 (Version 1)
Quarter: 2013Q2

REPORT INFORMATION
  Report Type: Spontaneous
  Country: US (occurrence: None)
  Receive Date: 20130517
  Receipt Date: 20130517
  Transmission Date: 20140414
  Serious: No
  Sender: FDA-Public Use
  Company Number: None

PATIENT
  Age: 50 Year
  Sex: Female

DRUGS (4)
  1. SULFASALAZINE [Suspect]
     Dates: start: 20110520, end: 20110717
  2. PREDNISONE [Concomitant]
  3. VYTORIN [Concomitant]
  4. MELOXICAM [Concomitant]

REACTIONS (1)
  - Hepatocellular injury [None]
